FAERS Safety Report 19240501 (Version 1)
Quarter: 2021Q2

REPORT INFORMATION
  Report Type: Spontaneous
  Country: US (occurrence: US)
  Receive Date: 20210511
  Receipt Date: 20210511
  Transmission Date: 20210717
  Serious: Yes (Other)
  Sender: FDA-Public Use
  Company Number: US-ASTELLAS-2021US016610

PATIENT
  Age: 75 Year
  Sex: Male

DRUGS (2)
  1. PADCEV [Suspect]
     Active Substance: ENFORTUMAB VEDOTIN-EJFV
     Dosage: 1 MG/KG, ONCE WEEKLY (3 WEELS ON AND ONE WEEK OFF)
     Route: 042
  2. PADCEV [Suspect]
     Active Substance: ENFORTUMAB VEDOTIN-EJFV
     Indication: TRANSITIONAL CELL CANCER OF THE RENAL PELVIS AND URETER
     Dosage: UNK UNK, UNKNOWN FREQ.
     Route: 042

REACTIONS (4)
  - Malignant neoplasm progression [Unknown]
  - Neuropathy peripheral [Unknown]
  - Peripheral motor neuropathy [Unknown]
  - Axonal neuropathy [Unknown]

NARRATIVE: CASE EVENT DATE: 2020
